FAERS Safety Report 7363604-2 (Version None)
Quarter: 2011Q1

REPORT INFORMATION
  Report Type: 
  Country: None (occurrence: None)
  Receive Date: 20110321
  Receipt Date: 20110315
  Transmission Date: 20110831
  Serious: Yes (Other)
  Sender: FDA-Public Use
  Company Number: GB-PFIZER INC-2011057400

PATIENT
  Age: 81 Year
  Sex: Female
  Weight: 72 kg

DRUGS (6)
  1. FLUCLOXACILLIN [Concomitant]
     Indication: SEPSIS
     Dosage: 500 MG, UNK
     Dates: start: 20101224
  2. LANSOPRAZOLE [Concomitant]
  3. METRONIDAZOLE [Suspect]
     Indication: SEPSIS
     Dosage: 400 MG, UNK
     Route: 048
     Dates: start: 20101223, end: 20101226
  4. ACETYLSALICYLIC ACID [Concomitant]
     Dosage: 75 MG, 1X/DAY
  5. BENDROFLUAZIDE [Concomitant]
  6. IRON [Concomitant]

REACTIONS (2)
  - SENSORY LOSS [None]
  - NEUROPATHY PERIPHERAL [None]
